FAERS Safety Report 23846852 (Version 1)
Quarter: 2024Q2

REPORT INFORMATION
  Report Type: Spontaneous
  Country: US (occurrence: None)
  Receive Date: 20240513
  Receipt Date: 20240513
  Transmission Date: 20240715
  Serious: Yes (Life-Threatening, Other)
  Sender: FDA-Public Use
  Company Number: US-Emmaus Medical, Inc.-EMM202404-000174

PATIENT
  Age: 25 Year
  Sex: Male
  Weight: 47.62 kg

DRUGS (15)
  1. ENDARI [Suspect]
     Active Substance: GLUTAMINE
     Indication: Sickle cell anaemia with crisis
     Dosage: 10 G
     Route: 048
     Dates: start: 20171130
  2. ENDARI [Suspect]
     Active Substance: GLUTAMINE
     Dosage: 10 G
     Route: 048
     Dates: start: 202304
  3. ENDARI [Suspect]
     Active Substance: GLUTAMINE
     Dosage: 10 G (TWO PACKETS)
     Route: 048
     Dates: start: 20240405
  4. DEFERASIROX [Concomitant]
     Active Substance: DEFERASIROX
     Indication: Product used for unknown indication
     Dosage: UNKNOWN
     Route: 048
  5. DEFERASIROX [Concomitant]
     Active Substance: DEFERASIROX
     Dosage: 360 MG
     Route: 065
     Dates: start: 20240405
  6. SODIUM CHLORIDE [Concomitant]
     Active Substance: SODIUM CHLORIDE
     Indication: Product used for unknown indication
     Dosage: 2 LITERS
     Route: 042
     Dates: start: 20210111
  7. VITAMIN D3 [Concomitant]
     Active Substance: CHOLECALCIFEROL
     Indication: Product used for unknown indication
     Dosage: 50 MCG (2,000 UNIT)
     Route: 048
     Dates: start: 20230211
  8. DIPHENHYDRAMINE [Concomitant]
     Active Substance: DIPHENHYDRAMINE
     Indication: Product used for unknown indication
     Dosage: 25 MG
     Route: 048
     Dates: start: 20230828
  9. DULOXETINE [Concomitant]
     Active Substance: DULOXETINE
     Indication: Product used for unknown indication
     Dosage: 60 MG
     Route: 048
     Dates: start: 20240131
  10. VITAMIN D2 [Concomitant]
     Active Substance: ERGOCALCIFEROL
     Indication: Product used for unknown indication
     Dosage: 1,250 MCG [50,000 UNIT]
     Route: 048
     Dates: start: 20240418
  11. FOLIC ACID [Concomitant]
     Active Substance: FOLIC ACID
     Indication: Product used for unknown indication
     Dosage: 1 MG
     Route: 048
     Dates: start: 20210308
  12. HYDROXYUREA [Concomitant]
     Active Substance: HYDROXYUREA
     Indication: Product used for unknown indication
     Dosage: 500 MG
     Route: 048
     Dates: start: 20240416
  13. MORPHINE [Concomitant]
     Active Substance: MORPHINE
     Indication: Product used for unknown indication
     Dosage: 30 MG
     Route: 048
     Dates: start: 20240423
  14. ACETAMINOPHEN\OXYCODONE HYDROCHLORIDE [Concomitant]
     Active Substance: ACETAMINOPHEN\OXYCODONE HYDROCHLORIDE
     Indication: Product used for unknown indication
     Dosage: 7.5 MG-325 MG
     Route: 048
     Dates: start: 20240423
  15. POTASSIUM CHLORIDE [Concomitant]
     Active Substance: POTASSIUM CHLORIDE
     Indication: Product used for unknown indication
     Dosage: 20 MEQ
     Route: 048
     Dates: start: 20240301

REACTIONS (49)
  - Suicidal ideation [Unknown]
  - Hypokalaemia [Unknown]
  - Pancytopenia [Unknown]
  - Cardiac failure congestive [Unknown]
  - Osteonecrosis [Unknown]
  - Cholecystectomy [Unknown]
  - Cardiac disorder [Unknown]
  - Respiratory failure [Recovered/Resolved]
  - Cerebrovascular accident [Unknown]
  - Bone marrow failure [Unknown]
  - Hypokalaemia [Unknown]
  - Hyponatraemia [Unknown]
  - Substance use [Unknown]
  - Adenotonsillectomy [Unknown]
  - Pneumonia [Unknown]
  - Sickle cell anaemia with crisis [Recovered/Resolved]
  - Sickle cell anaemia with crisis [Recovered/Resolved]
  - Allergy to arthropod sting [Unknown]
  - Seasonal allergy [Unknown]
  - Drug hypersensitivity [Unknown]
  - Haemosiderosis [Unknown]
  - Malnutrition [Unknown]
  - Iron overload [Unknown]
  - Hypomagnesaemia [Unknown]
  - Dehydration [Unknown]
  - Leukocytosis [Unknown]
  - Bronchitis [Unknown]
  - Gastroenteritis [Unknown]
  - Chest X-ray abnormal [Unknown]
  - Magnetic resonance imaging thoracic abnormal [Unknown]
  - Contusion [Unknown]
  - Resuscitation [Unknown]
  - Cardiac murmur [Unknown]
  - Gait disturbance [Unknown]
  - Rash [Unknown]
  - Blood creatinine decreased [Unknown]
  - Protein total decreased [Unknown]
  - Paraesthesia [Unknown]
  - Tobacco abuse [Unknown]
  - Arthralgia [Unknown]
  - Headache [Unknown]
  - Pain [Unknown]
  - Vomiting [Unknown]
  - Arthralgia [Unknown]
  - Arthralgia [Unknown]
  - Acute chest syndrome [Unknown]
  - Cough [Unknown]
  - Anaemia [Unknown]
  - Nausea [Unknown]

NARRATIVE: CASE EVENT DATE: 20181119
